FAERS Safety Report 18639919 (Version 1)
Quarter: 2020Q4

REPORT INFORMATION
  Report Type: Spontaneous
  Country: US (occurrence: US)
  Receive Date: 20201220
  Receipt Date: 20201220
  Transmission Date: 20210114
  Serious: No
  Sender: FDA-Public Use
  Company Number: US-PACIRA-202000015

PATIENT
  Age: 68 Year
  Sex: Female
  Weight: 98 kg

DRUGS (10)
  1. EXPAREL [Suspect]
     Active Substance: BUPIVACAINE
     Indication: KNEE ARTHROPLASTY
     Dosage: 266 MG, TISSUE INFILTRATION
     Dates: start: 20200127, end: 20200127
  2. SEVOFLOURINE [Concomitant]
     Indication: GENERAL ANAESTHESIA
     Dosage: NOT PROVIDED
     Route: 065
     Dates: start: 20200127, end: 20200127
  3. PROPOFOL. [Concomitant]
     Active Substance: PROPOFOL
     Indication: ANAESTHESIA
     Dosage: 230MG
     Route: 042
     Dates: start: 20200127, end: 20200127
  4. ZOFRAN [Concomitant]
     Active Substance: ONDANSETRON HYDROCHLORIDE
     Indication: PROCEDURAL NAUSEA
     Dosage: 4 MG
     Route: 042
     Dates: start: 20200127, end: 20200127
  5. LIDOCAINE. [Suspect]
     Active Substance: LIDOCAINE
     Indication: ANAESTHESIA
     Dosage: 40 MG
     Route: 042
     Dates: start: 20200127, end: 20200127
  6. PEPCID [Concomitant]
     Active Substance: FAMOTIDINE
     Indication: PROCEDURAL NAUSEA
     Dosage: 20 MG
     Route: 042
     Dates: start: 20200127, end: 20200127
  7. PERCOCET [Concomitant]
     Active Substance: ACETAMINOPHEN\OXYCODONE HYDROCHLORIDE
     Indication: PROCEDURAL PAIN
     Dosage: 5MG/325MG, 1 TABLET PRIOR TO DISCHARGE, 2 TABLETS EVERY 4 HOURS
     Route: 048
     Dates: start: 20200127
  8. DILAUDID [Concomitant]
     Active Substance: HYDROMORPHONE HYDROCHLORIDE
     Indication: PROCEDURAL PAIN
     Dosage: 1 MG
     Route: 042
     Dates: start: 20200127, end: 20200127
  9. MARCAINE WITH EPINEPHRINE [Suspect]
     Active Substance: BUPIVACAINE HYDROCHLORIDE\EPINEPHRINE BITARTRATE
     Dosage: 20ML, TISSUE IRRIGATION WITH EXPAREL
     Route: 065
     Dates: start: 20200127, end: 20200127
  10. FENTANYL. [Concomitant]
     Active Substance: FENTANYL
     Indication: ANAESTHESIA
     Dosage: 100 MCG
     Route: 042
     Dates: start: 20200127, end: 20200127

REACTIONS (5)
  - Vomiting [Recovered/Resolved]
  - Pain [Recovered/Resolved]
  - Drug ineffective [Recovered/Resolved]
  - Nausea [Recovered/Resolved]
  - Labelled drug-drug interaction medication error [Recovered/Resolved]

NARRATIVE: CASE EVENT DATE: 20200127
